FAERS Safety Report 6201008-6 (Version None)
Quarter: 2009Q2

REPORT INFORMATION
  Report Type: 
  Country: None (occurrence: None)
  Receive Date: 20090526
  Receipt Date: 20090514
  Transmission Date: 20091009
  Serious: Yes (Hospitalization, Other)
  Sender: FDA-Public Use
  Company Number: GB-RANBAXY-2007RR-05147

PATIENT

DRUGS (1)
  1. ACETAMINOPHEN [Suspect]
     Dosage: 150 MG, QD
     Route: 048

REACTIONS (4)
  - ACUTE HEPATIC FAILURE [None]
  - COMA [None]
  - METABOLIC ACIDOSIS [None]
  - OVERDOSE [None]
